FAERS Safety Report 10649931 (Version 2)
Quarter: 2014Q4

REPORT INFORMATION
  Report Type: Spontaneous
  Country: FR (occurrence: FR)
  Receive Date: 20141212
  Receipt Date: 20141223
  Transmission Date: 20150529
  Serious: Yes (Hospitalization, Other)
  Sender: FDA-Public Use
  Company Number: FR-PFIZER INC-2014339122

PATIENT
  Age: 9 Year
  Sex: Female
  Weight: 15 kg

DRUGS (8)
  1. VALPROIC ACID. [Suspect]
     Active Substance: VALPROIC ACID
     Indication: EPILEPSY
     Dosage: 400 MG, DAILY
     Dates: start: 1994
  2. VALPROIC ACID. [Suspect]
     Active Substance: VALPROIC ACID
     Indication: ENCEPHALOPATHY NEONATAL
  3. LAMICTAL [Suspect]
     Active Substance: LAMOTRIGINE
     Indication: EPILEPSY
     Dosage: 50 MG, DAILY
     Dates: start: 19961114
  4. CLONAZEPAM. [Suspect]
     Active Substance: CLONAZEPAM
     Indication: EPILEPSY
     Dosage: 4.5 MG, DAILY
     Dates: start: 1994
  5. CLONAZEPAM. [Suspect]
     Active Substance: CLONAZEPAM
     Indication: ENCEPHALOPATHY NEONATAL
  6. HYDROCORTISONE. [Suspect]
     Active Substance: HYDROCORTISONE
     Indication: ENCEPHALOPATHY NEONATAL
  7. HYDROCORTISONE. [Suspect]
     Active Substance: HYDROCORTISONE
     Indication: EPILEPSY
     Dosage: 30 MG, DAILY
     Dates: start: 1994
  8. LAMICTAL [Suspect]
     Active Substance: LAMOTRIGINE
     Indication: ENCEPHALOPATHY NEONATAL
     Dosage: 200 MG, DAILY (ALTHOUGH 100 MG/DAY HAD BEEN PRESCRIBED)
     Dates: start: 19961201

REACTIONS (1)
  - Stevens-Johnson syndrome [Recovering/Resolving]

NARRATIVE: CASE EVENT DATE: 19961204
